FAERS Safety Report 25391360 (Version 2)
Quarter: 2025Q2

REPORT INFORMATION
  Report Type: Spontaneous
  Country: US (occurrence: US)
  Receive Date: 20250603
  Receipt Date: 20250606
  Transmission Date: 20250717
  Serious: Yes (Other)
  Sender: PFIZER
  Company Number: US-PFIZER INC-PV202500065891

PATIENT
  Age: 23 Year
  Sex: Male

DRUGS (2)
  1. CUPRIC CHLORIDE [Suspect]
     Active Substance: CUPRIC CHLORIDE
     Indication: Intentional product misuse
     Route: 048
  2. CUPRIC SULFATE ANHYDROUS [Suspect]
     Active Substance: CUPRIC SULFATE ANHYDROUS
     Indication: Intentional product misuse
     Route: 048

REACTIONS (2)
  - Gastrointestinal injury [Unknown]
  - Intentional product misuse [Unknown]
